FAERS Safety Report 11760167 (Version 1)
Quarter: 2015Q4

REPORT INFORMATION
  Report Type: Spontaneous
  Country: US (occurrence: US)
  Receive Date: 20151120
  Receipt Date: 20151120
  Transmission Date: 20160304
  Serious: No
  Sender: FDA-Public Use
  Company Number: US-AQUA-2015AQU000047

PATIENT
  Age: 17 Year
  Sex: Male

DRUGS (1)
  1. ACTICLATE [Suspect]
     Active Substance: DOXYCYCLINE HYCLATE
     Indication: PRODUCT USED FOR UNKNOWN INDICATION
     Dosage: DAILY
     Route: 065
     Dates: start: 2015

REACTIONS (3)
  - Oesophageal ulcer [Unknown]
  - Odynophagia [Unknown]
  - Feeding disorder [Unknown]

NARRATIVE: CASE EVENT DATE: 2015
